FAERS Safety Report 7360270-7 (Version None)
Quarter: 2011Q1

REPORT INFORMATION
  Report Type: 
  Country: None (occurrence: None)
  Receive Date: 20110310
  Receipt Date: 20110301
  Transmission Date: 20110831
  Serious: Yes (Death)
  Sender: FDA-Public Use
  Company Number: UTC-005455

PATIENT
  Age: 61 Year
  Sex: Female

DRUGS (2)
  1. COUMADIN [Concomitant]
  2. REMODULIN [Suspect]
     Dosage: 122.4 UG/KGY(0.085~UG/KG,1 IN 1 MIN),SUBCUTANEOUS
     Route: 058

REACTIONS (1)
  - DEATH [None]
